FAERS Safety Report 7128473-4 (Version None)
Quarter: 2010Q4

REPORT INFORMATION
  Report Type: 
  Country: None (occurrence: None)
  Receive Date: 20101113
  Receipt Date: 20101027
  Transmission Date: 20110411
  Serious: Yes (Death, Hospitalization)
  Sender: FDA-Public Use
  Company Number: 2010004405

PATIENT
  Age: 64 Year
  Sex: Female
  Weight: 55.9 kg

DRUGS (8)
  1. ERLOTINIB (ERLOTINIB) (TABLET) (ERLOTINIB) [Suspect]
     Indication: NON-SMALL CELL LUNG CANCER
     Dosage: (150 MG, QD), ORAL
     Route: 048
     Dates: start: 20101004, end: 20101012
  2. ERLOTINIB (ERLOTINIB) (TABLET) (ERLOTINIB) [Suspect]
     Indication: NON-SMALL CELL LUNG CANCER
     Dosage: (150 MG, QD), ORAL
     Route: 048
     Dates: start: 20101020, end: 20101024
  3. DASATIMIB [Suspect]
     Indication: NON-SMALL CELL LUNG CANCER
     Dosage: (70 MG, QD), ORAL, (20 MG, QD), ORAL, (50 MG, QD), ORAL
     Route: 048
     Dates: start: 20101004, end: 20101012
  4. MECLIZINE [Concomitant]
  5. MULTIVITAMIN [Concomitant]
  6. ONDANSETRON [Concomitant]
  7. TRAZODONE (TRAZODONE) [Concomitant]
  8. VITAMIN D [Concomitant]

REACTIONS (8)
  - ANXIETY [None]
  - EMPHYSEMA [None]
  - HEART RATE INCREASED [None]
  - PLEURAL EFFUSION [None]
  - PNEUMONIA [None]
  - RESPIRATORY FAILURE [None]
  - TRACHEOBRONCHITIS [None]
  - UPPER RESPIRATORY TRACT INFECTION [None]
